FAERS Safety Report 23404022 (Version 1)
Quarter: 2024Q1

REPORT INFORMATION
  Report Type: Spontaneous
  Country: JP (occurrence: JP)
  Receive Date: 20240116
  Receipt Date: 20240116
  Transmission Date: 20240409
  Serious: Yes (Other)
  Sender: FDA-Public Use
  Company Number: JP-GILEAD-2024-0658162

PATIENT
  Age: 81 Year
  Sex: Female

DRUGS (1)
  1. VEMLIDY [Suspect]
     Active Substance: TENOFOVIR ALAFENAMIDE FUMARATE
     Indication: Viral hepatitis carrier
     Dosage: UNK
     Route: 048
     Dates: start: 202203

REACTIONS (5)
  - Colon cancer metastatic [Unknown]
  - Metastases to peritoneum [Unknown]
  - Peritonitis [Unknown]
  - Gastrointestinal perforation [Unknown]
  - Nausea [Unknown]
